FAERS Safety Report 8226032-3 (Version None)
Quarter: 2012Q1

REPORT INFORMATION
  Report Type: 
  Country: None (occurrence: None)
  Receive Date: 20120321
  Receipt Date: 20120320
  Transmission Date: 20120608
  Serious: No
  Sender: FDA-Public Use
  Company Number: US-PFIZER INC-2012072773

PATIENT
  Sex: Female
  Weight: 72.562 kg

DRUGS (5)
  1. HYDROCODONE [Concomitant]
     Indication: PAIN
     Dosage: UNK
  2. CHANTIX [Suspect]
     Indication: SMOKING CESSATION THERAPY
     Dosage: 0.5 MG, 1X/DAY
     Route: 048
     Dates: start: 20080701, end: 20080801
  3. ACETYLSALICYLIC ACID/CARISOPRODOL [Concomitant]
     Dosage: UNK
  4. KADIAN ^KNOLL^ [Concomitant]
     Dosage: UNK
  5. IMITREX [Concomitant]
     Dosage: UNK

REACTIONS (2)
  - BLOOD CHOLESTEROL INCREASED [None]
  - MIGRAINE [None]
